FAERS Safety Report 24648980 (Version 1)
Quarter: 2024Q4

REPORT INFORMATION
  Report Type: Spontaneous
  Country: US (occurrence: US)
  Receive Date: 20241121
  Receipt Date: 20241121
  Transmission Date: 20250115
  Serious: No
  Sender: MYCOVIA PHARMACEUTICALS, INC.
  Company Number: US-MYCOVIA PHARMACEUTICALS, INC.-US-MYC-24-00005

PATIENT

DRUGS (4)
  1. VIVJOA [Suspect]
     Active Substance: OTESECONAZOLE
     Indication: Product used for unknown indication
     Dosage: 4 CAPSULES, DAY 1
     Route: 048
     Dates: start: 20240329, end: 20240329
  2. VIVJOA [Suspect]
     Active Substance: OTESECONAZOLE
     Dosage: 3 CAPSULES, DAY 2
     Route: 048
     Dates: start: 20240330, end: 20240330
  3. VIVJOA [Suspect]
     Active Substance: OTESECONAZOLE
     Dosage: 1 CAPSULE, WEEKLY FOR 11 WEEKS
     Route: 048
     Dates: start: 20240331
  4. ESTRADIOL [Concomitant]
     Active Substance: ESTRADIOL
     Indication: Product used for unknown indication
     Dosage: UNK

REACTIONS (5)
  - Hypertension [Not Recovered/Not Resolved]
  - Fatigue [Not Recovered/Not Resolved]
  - Tremor [Recovered/Resolved]
  - Presyncope [Recovered/Resolved]
  - Drug ineffective [Not Recovered/Not Resolved]

NARRATIVE: CASE EVENT DATE: 20240101
